FAERS Safety Report 6070856-8 (Version None)
Quarter: 2009Q1

REPORT INFORMATION
  Report Type: 
  Country: None (occurrence: None)
  Receive Date: 20090209
  Receipt Date: 20081003
  Transmission Date: 20090719
  Serious: No
  Sender: FDA-Public Use
  Company Number: A0750478A

PATIENT
  Age: 23 Year
  Sex: Female

DRUGS (1)
  1. PAROXETINE HCL [Suspect]
     Dosage: 20MG PER DAY
     Route: 048
     Dates: start: 20060101, end: 20080901

REACTIONS (5)
  - DEPRESSION [None]
  - DIZZINESS [None]
  - MOOD SWINGS [None]
  - PARAESTHESIA [None]
  - WITHDRAWAL SYNDROME [None]
